FAERS Safety Report 8299052-0 (Version None)
Quarter: 2012Q2

REPORT INFORMATION
  Report Type: 
  Country: None (occurrence: None)
  Receive Date: 20120419
  Receipt Date: 20120404
  Transmission Date: 20120825
  Serious: Yes (Hospitalization)
  Sender: FDA-Public Use
  Company Number: PHHY2012JP027456

PATIENT
  Sex: Male

DRUGS (5)
  1. STEROIDS NOS [Suspect]
     Indication: RENAL AND PANCREAS TRANSPLANT
     Dosage: 5 MG, UNK
     Route: 048
     Dates: start: 20101201
  2. INSULIN [Concomitant]
     Dosage: UNK UKN, UNK
  3. PROGRAF [Suspect]
     Indication: RENAL AND PANCREAS TRANSPLANT
     Dosage: UNK UKN, UNK
     Route: 048
     Dates: start: 20101201
  4. SIMULECT [Suspect]
     Indication: RENAL AND PANCREAS TRANSPLANT
     Dosage: UNK UKN, UNK
     Route: 042
     Dates: start: 20101201, end: 20101201
  5. MYCOPHENOLATE MOFETIL (CELLCEPT) [Suspect]
     Indication: RENAL AND PANCREAS TRANSPLANT
     Dosage: 1500 MG, UNK
     Route: 048
     Dates: start: 20101201

REACTIONS (5)
  - COLITIS ISCHAEMIC [None]
  - CYTOMEGALOVIRUS INFECTION [None]
  - ABDOMINAL ABSCESS [None]
  - BLOOD CREATININE INCREASED [None]
  - PNEUMONIA [None]
